FAERS Safety Report 14619052 (Version 1)
Quarter: 2018Q1

REPORT INFORMATION
  Report Type: Spontaneous
  Country: PL (occurrence: PL)
  Receive Date: 20180309
  Receipt Date: 20180309
  Transmission Date: 20180509
  Serious: Yes (Other)
  Sender: FDA-Public Use
  Company Number: PL-PFIZER INC-2018092472

PATIENT
  Sex: Male

DRUGS (3)
  1. INLYTA [Suspect]
     Active Substance: AXITINIB
     Indication: RENAL CANCER
     Dosage: 5 MG, UNK
  2. EUTHYROX [Concomitant]
     Active Substance: LEVOTHYROXINE SODIUM
     Dosage: 25 MG, UNK
  3. INLYTA [Suspect]
     Active Substance: AXITINIB
     Dosage: 7 MG, UNK

REACTIONS (7)
  - Polyneuropathy [Unknown]
  - Haemorrhoids [Unknown]
  - Proctalgia [Unknown]
  - Dysphonia [Unknown]
  - Mouth ulceration [Unknown]
  - Pain in extremity [Unknown]
  - Dry mouth [Unknown]
